FAERS Safety Report 8860975 (Version 1)
Quarter: 2012Q4

REPORT INFORMATION
  Report Type: 
  Country: US (occurrence: US)
  Receive Date: 20121025
  Receipt Date: 20121025
  Transmission Date: 20130627
  Serious: No
  Sender: FDA-Public Use
  Company Number: US-AMGEN-USASP2012012631

PATIENT
  Sex: Female
  Weight: 119.27 kg

DRUGS (5)
  1. ENBREL [Suspect]
     Indication: PRODUCT USED FOR UNKNOWN INDICATION
     Dosage: 50 mg, qwk
     Route: 058
  2. FUROSEMIDE [Concomitant]
     Dosage: UNK
     Route: 048
  3. LEXAPRO [Concomitant]
     Dosage: UNK
     Route: 048
  4. SULFASALAZIN [Concomitant]
     Route: 048
  5. POTASSIUM [Concomitant]
     Route: 048

REACTIONS (3)
  - Neck pain [Unknown]
  - Back pain [Unknown]
  - Injection site pain [Unknown]
